FAERS Safety Report 13179361 (Version 7)
Quarter: 2017Q2

REPORT INFORMATION
  Report Type: Spontaneous
  Country: JP (occurrence: JP)
  Receive Date: 20170202
  Receipt Date: 20170418
  Transmission Date: 20170830
  Serious: Yes (Death, Other)
  Sender: FDA-Public Use
  Company Number: JP-PFIZER INC-2017034157

PATIENT
  Age: 74 Year
  Sex: Female
  Weight: 39.4 kg

DRUGS (10)
  1. VFEND [Suspect]
     Active Substance: VORICONAZOLE
     Indication: BRONCHOPULMONARY ASPERGILLOSIS
     Dosage: 200 MG, 2X/DAY
     Route: 048
     Dates: start: 20170116, end: 20170118
  2. LUPRAC [Concomitant]
     Active Substance: TORSEMIDE
     Dosage: 4 MG, 1X/DAY
  3. SENNOSIDE /00571901/ [Concomitant]
     Active Substance: SENNOSIDES A AND B
     Dosage: 2 DF, AS NEEDED
  4. HERBAL NOS [Concomitant]
     Active Substance: HERBALS
     Dosage: 2.5 G, 3X/DAY
  5. VANCOMYCIN HCL [Suspect]
     Active Substance: VANCOMYCIN HYDROCHLORIDE
     Dosage: UNK
  6. LIXIANA [Concomitant]
     Active Substance: EDOXABAN TOSYLATE
     Dosage: 30 MG, 1X/DAY
  7. TRAMCET [Concomitant]
     Active Substance: ACETAMINOPHEN\TRAMADOL
     Dosage: 1 DF, 4X/DAY
  8. TAKECAB [Concomitant]
     Active Substance: VONOPRAZAN FUMURATE
     Dosage: 20 MG, 1X/DAY
  9. ROZEREM [Concomitant]
     Active Substance: RAMELTEON
     Dosage: 8 MG, 1X/DAY
  10. MAGNESIUM OXIDE. [Concomitant]
     Active Substance: MAGNESIUM OXIDE
     Dosage: 250 MG, 3X/DAY

REACTIONS (14)
  - Hallucination [Not Recovered/Not Resolved]
  - Drug level increased [Unknown]
  - Photopsia [Unknown]
  - Visual impairment [Unknown]
  - Pneumonia [Unknown]
  - Pneumonia bacterial [Not Recovered/Not Resolved]
  - Respiratory failure [Unknown]
  - Chronic obstructive pulmonary disease [Unknown]
  - Acidosis [Fatal]
  - Lung abscess [Unknown]
  - Sepsis [Unknown]
  - Renal failure [Unknown]
  - Asthma [Unknown]
  - Vitreous floaters [Unknown]

NARRATIVE: CASE EVENT DATE: 201701
